FAERS Safety Report 8791040 (Version 1)
Quarter: 2012Q4

REPORT INFORMATION
  Report Type: Spontaneous
  Country: US (occurrence: None)
  Receive Date: 20120910
  Receipt Date: 20120910
  Transmission Date: 20130627
  Serious: Yes (Disabling, Other)
  Sender: FDA-Public Use
  Company Number: AUR-APL-2012-03740

PATIENT
  Age: 32 Year
  Sex: Female
  Weight: 52 kg

DRUGS (1)
  1. FLUCONAZOLE [Suspect]
     Indication: THRUSH
     Dosage: 50 mg (50 mg, 1 in 1 D), ORAL
     Route: 048
     Dates: start: 20120801, end: 20120807

REACTIONS (6)
  - Chest pain [None]
  - Oesophageal spasm [None]
  - Middle insomnia [None]
  - Sleep disorder due to general medical condition, insomnia type [None]
  - Fluid intake reduced [None]
  - Hypophagia [None]
